FAERS Safety Report 12074665 (Version 2)
Quarter: 2016Q2

REPORT INFORMATION
  Report Type: Spontaneous
  Country: US (occurrence: US)
  Receive Date: 20160212
  Receipt Date: 20160414
  Transmission Date: 20160815
  Serious: No
  Sender: FDA-Public Use
  Company Number: US-PFIZER INC-2016027662

PATIENT
  Age: 58 Year
  Sex: Female
  Weight: 78.93 kg

DRUGS (3)
  1. EFFEXOR XR [Suspect]
     Active Substance: VENLAFAXINE HYDROCHLORIDE
     Indication: ANXIETY
     Dosage: 75MG, ONE CAPSULE TWICE A DAY
     Route: 048
     Dates: start: 2012, end: 201512
  2. EFFEXOR XR [Suspect]
     Active Substance: VENLAFAXINE HYDROCHLORIDE
     Indication: ABNORMAL BEHAVIOUR
     Dosage: 75MG, ONE CAPSULE, ONE TIME A DAY
     Route: 048
     Dates: start: 20151218
  3. EFFEXOR XR [Suspect]
     Active Substance: VENLAFAXINE HYDROCHLORIDE
     Indication: DEPRESSION
     Dosage: 75MG, ONE CAPSULE TWICE A DAY
     Route: 048
     Dates: start: 2011, end: 2012

REACTIONS (7)
  - Feeling abnormal [Not Recovered/Not Resolved]
  - Stress [Unknown]
  - Decreased appetite [Not Recovered/Not Resolved]
  - Anxiety [Unknown]
  - Intentional product use issue [Not Recovered/Not Resolved]
  - Hyperhidrosis [Not Recovered/Not Resolved]
  - Crying [Not Recovered/Not Resolved]

NARRATIVE: CASE EVENT DATE: 201512
